FAERS Safety Report 9378038 (Version 1)
Quarter: 2013Q3

REPORT INFORMATION
  Report Type: Spontaneous
  Country: GB (occurrence: GB)
  Receive Date: 20130701
  Receipt Date: 20130701
  Transmission Date: 20140515
  Serious: Yes (Other)
  Sender: FDA-Public Use
  Company Number: GB-BANPHARM-20131435

PATIENT
  Age: 23 Year
  Sex: Female

DRUGS (4)
  1. IBUPROFEN UNKNOWN PRODUCT [Suspect]
     Route: 065
     Dates: start: 20130605
  2. CETIRIZINE [Concomitant]
     Dates: start: 20130605
  3. CLOTRIMAZOLE [Concomitant]
     Dates: start: 20130604
  4. OMEPRAZOLE [Concomitant]
     Dates: start: 20130415, end: 20130513

REACTIONS (1)
  - Drug eruption [Recovering/Resolving]
